FAERS Safety Report 21995316 (Version 1)
Quarter: 2023Q1

REPORT INFORMATION
  Report Type: Spontaneous
  Country: US (occurrence: None)
  Receive Date: 20230214
  Receipt Date: 20230214
  Transmission Date: 20230417
  Serious: Yes (unspecified)
  Sender: FDA-Public Use
  Company Number: None

PATIENT
  Age: 6 Year
  Sex: Male

DRUGS (1)
  1. METHYLPHENIDATE [Suspect]
     Active Substance: METHYLPHENIDATE
     Indication: Attention deficit hyperactivity disorder
     Dosage: FREQUENCY : DAILY;?
     Route: 048
     Dates: start: 20230205, end: 20230212

REACTIONS (4)
  - Aggression [None]
  - Abnormal behaviour [None]
  - Impulsive behaviour [None]
  - Product substitution issue [None]

NARRATIVE: CASE EVENT DATE: 20230212
